FAERS Safety Report 6391983-1 (Version None)
Quarter: 2009Q4

REPORT INFORMATION
  Report Type: 
  Country: None (occurrence: None)
  Receive Date: 20091007
  Receipt Date: 20091002
  Transmission Date: 20100525
  Serious: Yes (Hospitalization)
  Sender: FDA-Public Use
  Company Number: B0594074A

PATIENT
  Sex: Male

DRUGS (7)
  1. LAMICTAL [Suspect]
     Indication: EPILEPSY
     Route: 048
     Dates: start: 20090701, end: 20090904
  2. HYSERENIN [Concomitant]
     Indication: EPILEPSY
     Dosage: 800MG PER DAY
     Route: 048
     Dates: start: 20080502
  3. TEGRETOL [Concomitant]
     Indication: EPILEPSY
     Dosage: 400MG PER DAY
     Route: 048
     Dates: start: 20081001
  4. MYSTAN [Concomitant]
     Indication: EPILEPSY
     Dosage: 1.5G PER DAY
     Route: 048
     Dates: start: 20071017
  5. AKINETON [Concomitant]
     Indication: SALIVARY HYPERSECRETION
     Dosage: 2G PER DAY
     Route: 048
     Dates: start: 20081106
  6. DIAZEPAM [Concomitant]
     Indication: EPILEPSY
     Dosage: 5MG PER DAY
     Route: 048
     Dates: start: 20071003
  7. PURSENNID [Concomitant]
     Indication: CONSTIPATION
     Route: 048
     Dates: start: 20071017

REACTIONS (2)
  - CONVULSION [None]
  - STATUS EPILEPTICUS [None]
